FAERS Safety Report 15393244 (Version 1)
Quarter: 2018Q3

REPORT INFORMATION
  Report Type: Spontaneous
  Country: US (occurrence: US)
  Receive Date: 20180917
  Receipt Date: 20180917
  Transmission Date: 20181010
  Serious: No
  Sender: FDA-Public Use
  Company Number: US-LEADIANT BIOSCIENCES INC-2017STPI000654

PATIENT
  Age: 46 Year
  Sex: Female

DRUGS (5)
  1. MIRALAX [Concomitant]
     Active Substance: POLYETHYLENE GLYCOL 3350
  2. GRANISETRON [Concomitant]
     Active Substance: GRANISETRON
  3. COLACE [Concomitant]
     Active Substance: DOCUSATE SODIUM
  4. KEPPRA [Concomitant]
     Active Substance: LEVETIRACETAM
  5. MATULANE [Suspect]
     Active Substance: PROCARBAZINE HYDROCHLORIDE
     Indication: BRAIN NEOPLASM MALIGNANT
     Dosage: 50 MG, QD
     Dates: start: 20160908

REACTIONS (1)
  - Constipation [Unknown]

NARRATIVE: CASE EVENT DATE: 201704
